FAERS Safety Report 7908526-0 (Version None)
Quarter: 2011Q4

REPORT INFORMATION
  Report Type: 
  Country: None (occurrence: None)
  Receive Date: 20111111
  Receipt Date: 20111102
  Transmission Date: 20120403
  Serious: Yes (Other)
  Sender: FDA-Public Use
  Company Number: AR-AMGEN-ARGSP2011051931

PATIENT
  Age: 62 Year
  Sex: Female
  Weight: 76 kg

DRUGS (2)
  1. ENBREL [Suspect]
     Indication: RHEUMATOID ARTHRITIS
     Dosage: 25 MG, EVERY 2 WEEKS
     Route: 058
     Dates: start: 20040816
  2. LEVOTHYROXINE SODIUM [Concomitant]
     Dosage: UNK

REACTIONS (1)
  - NEOPLASM PROGRESSION [None]
